FAERS Safety Report 6113194-7 (Version None)
Quarter: 2009Q1

REPORT INFORMATION
  Report Type: 
  Country: None (occurrence: None)
  Receive Date: 20090312
  Receipt Date: 20090309
  Transmission Date: 20090719
  Serious: Yes (Other)
  Sender: FDA-Public Use
  Company Number: CN-JNJFOC-20090300286

PATIENT
  Age: 5 Month
  Sex: Female
  Weight: 7 kg

DRUGS (4)
  1. CHILDREN'S MOTRIN [Suspect]
     Route: 048
  2. CHILDREN'S MOTRIN [Suspect]
     Indication: PYREXIA
     Dosage: 50 MG TIMES 3
     Route: 048
  3. ASCORBIC ACID [Suspect]
     Indication: INFECTION
  4. PIDOTIMODORALSODUTION [Suspect]
     Indication: INFECTION

REACTIONS (3)
  - FONTANELLE BULGING [None]
  - LYMPHADENOPATHY [None]
  - RASH [None]
